FAERS Safety Report 5071385-0 (Version None)
Quarter: 2006Q3

REPORT INFORMATION
  Report Type: 
  Country: None (occurrence: None)
  Receive Date: 20060804
  Receipt Date: 20060314
  Transmission Date: 20061208
  Serious: No
  Sender: FDA-Public Use
  Company Number: US-AMGEN-US172345

PATIENT
  Sex: Female

DRUGS (10)
  1. ARANESP [Suspect]
     Indication: DIALYSIS
     Route: 058
     Dates: start: 20050301, end: 20060301
  2. VENOFER [Concomitant]
  3. LOPRESSOR [Concomitant]
  4. PREVACID [Concomitant]
  5. ZEMPLAR [Concomitant]
  6. PHOSLO [Concomitant]
  7. MULTIVITAMINS W/MINERALS [Concomitant]
  8. ROCALTROL [Concomitant]
  9. LASIX [Concomitant]
  10. VITAMIN D [Concomitant]

REACTIONS (1)
  - THERAPEUTIC RESPONSE DECREASED [None]
